FAERS Safety Report 18814018 (Version 1)
Quarter: 2021Q1

REPORT INFORMATION
  Report Type: Spontaneous
  Country: US (occurrence: US)
  Receive Date: 20210201
  Receipt Date: 20210201
  Transmission Date: 20210419
  Serious: No
  Sender: FDA-Public Use
  Company Number: US-SUN PHARMACEUTICAL INDUSTRIES LTD-2020R1-258675

PATIENT
  Age: 39 Year
  Sex: Male

DRUGS (1)
  1. DESMOPRESSIN [Suspect]
     Active Substance: DESMOPRESSIN
     Indication: PRODUCT USED FOR UNKNOWN INDICATION
     Route: 065

REACTIONS (5)
  - Extra dose administered [Unknown]
  - Respiration abnormal [Unknown]
  - Nasal discomfort [Unknown]
  - Product container issue [Unknown]
  - Head discomfort [Unknown]

NARRATIVE: CASE EVENT DATE: 202008
